FAERS Safety Report 4439675-X (Version None)
Quarter: 2004Q3

REPORT INFORMATION
  Report Type: 
  Country: None (occurrence: None)
  Receive Date: 20040902
  Receipt Date: 20040712
  Transmission Date: 20050211
  Serious: Yes (Death)
  Sender: FDA-Public Use
  Company Number: 200412697FR

PATIENT
  Age: 58 Year
  Sex: Male
  Weight: 67 kg

DRUGS (17)
  1. RIFADIN [Suspect]
     Indication: TUBERCULOSIS
     Route: 042
     Dates: start: 20040324, end: 20040513
  2. RIMIFON [Suspect]
     Indication: TUBERCULOSIS
     Route: 042
     Dates: start: 20040324, end: 20040513
  3. AUGMENTIN '125' [Suspect]
     Indication: INTERVERTEBRAL DISCITIS
     Route: 042
     Dates: start: 20040301, end: 20040430
  4. LASIX [Concomitant]
  5. FLAGYL [Concomitant]
     Dates: start: 20040312, end: 20040426
  6. TRIFLUCAN [Concomitant]
     Dates: start: 20040330, end: 20040501
  7. CIPROFLOXACIN [Concomitant]
     Indication: INTERVERTEBRAL DISCITIS
     Route: 042
     Dates: start: 20040422, end: 20040505
  8. TAZOCILLINE [Concomitant]
     Indication: INTERVERTEBRAL DISCITIS
     Dates: start: 20040301, end: 20040425
  9. MYAMBUTOL [Concomitant]
     Indication: TUBERCULOSIS
     Dates: start: 20040324, end: 20040505
  10. CLINDAMYCIN HCL [Concomitant]
     Dates: start: 20040325, end: 20040331
  11. GARDENALE [Concomitant]
     Indication: CONVULSION
     Dates: start: 20040413
  12. ZEFFIX [Concomitant]
     Indication: HEPATITIS B VIRUS
     Route: 048
  13. SEROPRAM [Concomitant]
  14. OMEPRAZOLE [Concomitant]
     Route: 048
  15. TIENAM [Concomitant]
     Dates: start: 20040401, end: 20040505
  16. VANCOMYCIN [Concomitant]
     Dates: start: 20040422, end: 20040505
  17. VFEND [Concomitant]
     Route: 042
     Dates: start: 20040501, end: 20040511

REACTIONS (25)
  - ANURIA [None]
  - BICYTOPENIA [None]
  - CANDIDIASIS [None]
  - CHOLELITHIASIS [None]
  - CONDITION AGGRAVATED [None]
  - CONJUNCTIVAL HAEMORRHAGE [None]
  - CONJUNCTIVAL OEDEMA [None]
  - CONJUNCTIVITIS [None]
  - CONVULSION [None]
  - CYTOLYTIC HEPATITIS [None]
  - DRUG INTERACTION [None]
  - GALLBLADDER DISORDER [None]
  - HAEMODYNAMIC INSTABILITY [None]
  - HAEMOGLOBIN DECREASED [None]
  - HEPATIC FAILURE [None]
  - HEPATITIS FULMINANT [None]
  - HEPATOCELLULAR DAMAGE [None]
  - HEPATOTOXICITY [None]
  - HYPOTENSION [None]
  - HYPOXIA [None]
  - LACTIC ACIDOSIS [None]
  - MULTI-ORGAN FAILURE [None]
  - SEPTIC SHOCK [None]
  - SERRATIA INFECTION [None]
  - THERAPY NON-RESPONDER [None]
